FAERS Safety Report 7340012-1 (Version None)
Quarter: 2011Q1

REPORT INFORMATION
  Report Type: 
  Country: None (occurrence: None)
  Receive Date: 20110309
  Receipt Date: 20110303
  Transmission Date: 20110831
  Serious: No
  Sender: FDA-Public Use
  Company Number: US-PFIZER INC-2011047281

PATIENT
  Sex: Female
  Weight: 83.9 kg

DRUGS (7)
  1. VITAMIN D [Concomitant]
     Dosage: UNK
  2. AROMASIN [Suspect]
     Indication: BREAST CANCER
     Dosage: 25 MG, 1X/DAY
     Route: 048
     Dates: start: 20091024
  3. MULTI-VITAMINS [Concomitant]
     Dosage: UNK
  4. ACETYLSALICYLIC ACID [Concomitant]
     Dosage: UNK
  5. CALCIUM [Concomitant]
     Dosage: UNK
  6. LUMIGAN [Concomitant]
     Indication: GLAUCOMA
     Dosage: UNK
  7. KLONOPIN [Concomitant]
     Dosage: UNK

REACTIONS (3)
  - URINARY INCONTINENCE [None]
  - CYSTITIS [None]
  - BLADDER DISORDER [None]
